FAERS Safety Report 6239186-5 (Version None)
Quarter: 2009Q2

REPORT INFORMATION
  Report Type: 
  Country: None (occurrence: None)
  Receive Date: 20090617
  Receipt Date: 20080326
  Transmission Date: 20091009
  Serious: No
  Sender: FDA-Public Use
  Company Number: 273611

PATIENT
  Age: 44 Year
  Sex: Male

DRUGS (6)
  1. NOVOLOG [Suspect]
     Indication: INSULIN-REQUIRING TYPE 2 DIABETES MELLITUS
     Dosage: SUBCUTANEOUS
     Route: 058
     Dates: end: 20080101
  2. NOVOLOG [Suspect]
     Indication: INSULIN-REQUIRING TYPE 2 DIABETES MELLITUS
     Dosage: SUBCUTANEOUS
     Route: 058
     Dates: end: 20080101
  3. LEVEMIR [Suspect]
     Indication: INSULIN-REQUIRING TYPE 2 DIABETES MELLITUS
     Dosage: SUBCUTANEOUS
     Route: 058
     Dates: end: 20080101
  4. LEVEMIR [Suspect]
     Indication: INSULIN-REQUIRING TYPE 2 DIABETES MELLITUS
     Dosage: SUBCUTANEOUS
     Route: 058
     Dates: end: 20080101
  5. NOVOLIN R [Suspect]
     Indication: INSULIN-REQUIRING TYPE 2 DIABETES MELLITUS
     Dosage: SUBCUTANEOUS
     Route: 058
     Dates: end: 20080101
  6. NOVOLIN N [Suspect]
     Indication: INSULIN-REQUIRING TYPE 2 DIABETES MELLITUS
     Dosage: SUBCUTANEOUS
     Route: 058
     Dates: end: 20080101

REACTIONS (1)
  - HYPERSENSITIVITY [None]
